FAERS Safety Report 17265225 (Version 1)
Quarter: 2020Q1

REPORT INFORMATION
  Report Type: Report from Study
  Country: GB (occurrence: GB)
  Receive Date: 20200114
  Receipt Date: 20200114
  Transmission Date: 20200409
  Serious: Yes (Other)
  Sender: FDA-Public Use
  Company Number: GB-EMD SERONO-9139213

PATIENT
  Sex: Female

DRUGS (1)
  1. REBIF [Suspect]
     Active Substance: INTERFERON BETA-1A
     Indication: MULTIPLE SCLEROSIS
     Dosage: CARTRIDGES, (6 MIU)
     Route: 058

REACTIONS (5)
  - Hypersomnia [Unknown]
  - Conjunctivitis [Unknown]
  - Pollakiuria [Unknown]
  - Pain [Unknown]
  - Lower respiratory tract infection [Unknown]
